FAERS Safety Report 15168894 (Version 1)
Quarter: 2018Q3

REPORT INFORMATION
  Report Type: Spontaneous
  Country: GR (occurrence: GR)
  Receive Date: 20180720
  Receipt Date: 20180720
  Transmission Date: 20181010
  Serious: Yes (Other)
  Sender: FDA-Public Use
  Company Number: GR-CONCORDIA PHARMACEUTICALS INC.-E2B_00014101

PATIENT
  Age: 82 Year
  Sex: Female

DRUGS (3)
  1. VURDON /00372302/ [Suspect]
     Active Substance: DICLOFENAC SODIUM
     Indication: HYPOTONIA
     Dosage: UNK
     Route: 065
  2. PREDNISOLONE. [Suspect]
     Active Substance: PREDNISOLONE
     Indication: HYPOTONIA
     Dosage: UNK
     Route: 065
  3. MUSCO?RIL [Suspect]
     Active Substance: THIOCOLCHICOSIDE
     Indication: HYPOTONIA
     Dosage: UNK
     Route: 065

REACTIONS (2)
  - Lactose intolerance [Unknown]
  - Negative thoughts [Unknown]
